FAERS Safety Report 14356990 (Version 1)
Quarter: 2018Q1

REPORT INFORMATION
  Report Type: Spontaneous
  Country: US (occurrence: US)
  Receive Date: 20180105
  Receipt Date: 20180105
  Transmission Date: 20180509
  Serious: Yes (Hospitalization)
  Sender: FDA-Public Use
  Company Number: US-FRESENIUS KABI-FK201800213

PATIENT
  Age: 34 Year
  Sex: Male

DRUGS (1)
  1. LACTULOSE (NOT SPECIFIED) [Suspect]
     Active Substance: LACTULOSE
     Indication: HEPATIC ENCEPHALOPATHY
     Route: 065

REACTIONS (3)
  - Diarrhoea [Recovered/Resolved]
  - Osmotic demyelination syndrome [Unknown]
  - Hypernatraemia [Recovered/Resolved]
